FAERS Safety Report 13680891 (Version 1)
Quarter: 2017Q2

REPORT INFORMATION
  Report Type: Spontaneous
  Country: US (occurrence: US)
  Receive Date: 20170622
  Receipt Date: 20170622
  Transmission Date: 20170830
  Serious: Yes (Hospitalization)
  Sender: FDA-Public Use
  Company Number: None

PATIENT
  Age: 53 Year
  Sex: Female

DRUGS (8)
  1. PROCHLORPER [Concomitant]
  2. FENTANYL. [Concomitant]
     Active Substance: FENTANYL
  3. NEURONTIN [Concomitant]
     Active Substance: GABAPENTIN
  4. SYNTHROID [Concomitant]
     Active Substance: LEVOTHYROXINE SODIUM
  5. PRILOSEC [Concomitant]
     Active Substance: OMEPRAZOLE MAGNESIUM
  6. CAPECITABINE TEVA [Suspect]
     Active Substance: CAPECITABINE
     Indication: NEOPLASM MALIGNANT
     Route: 048
     Dates: start: 20170412
  7. LISINOPRIL. [Concomitant]
     Active Substance: LISINOPRIL
  8. ZOFRAN [Concomitant]
     Active Substance: ONDANSETRON HYDROCHLORIDE

REACTIONS (2)
  - Hospitalisation [None]
  - Malignant neoplasm progression [None]

NARRATIVE: CASE EVENT DATE: 20170617
